FAERS Safety Report 7915995-9 (Version None)
Quarter: 2011Q4

REPORT INFORMATION
  Report Type: 
  Country: None (occurrence: None)
  Receive Date: 20111115
  Receipt Date: 20111107
  Transmission Date: 20120403
  Serious: Yes (Other)
  Sender: FDA-Public Use
  Company Number: CA-ASTRAZENECA-2011SE67178

PATIENT
  Age: 55 Year
  Sex: Female

DRUGS (5)
  1. LEVOTHYROXINE SODIUM [Concomitant]
     Route: 048
  2. METFORMIN HCL [Concomitant]
     Route: 048
  3. ZANTAC [Concomitant]
     Route: 048
  4. CRESTOR [Suspect]
     Route: 048
  5. HYDROCHLOROTHIAZIDE [Concomitant]
     Route: 048

REACTIONS (6)
  - HEADACHE [None]
  - RASH GENERALISED [None]
  - ABDOMINAL PAIN UPPER [None]
  - ERYTHEMA [None]
  - STOMATITIS [None]
  - SWOLLEN TONGUE [None]
